FAERS Safety Report 5473938-4 (Version None)
Quarter: 2007Q4

REPORT INFORMATION
  Report Type: 
  Country: None (occurrence: None)
  Receive Date: 20071001
  Receipt Date: 20070919
  Transmission Date: 20080405
  Serious: Yes (Other)
  Sender: FDA-Public Use
  Company Number: US-PFIZER INC-2007080245

PATIENT
  Sex: Female
  Weight: 65 kg

DRUGS (4)
  1. CHANTIX [Suspect]
     Indication: SMOKING CESSATION THERAPY
  2. ESGIC-PLUS [Concomitant]
     Indication: HEADACHE
  3. DARVOCET [Concomitant]
     Indication: INTERVERTEBRAL DISC PROTRUSION
  4. FLEXERIL [Concomitant]
     Dosage: FREQ:AS NEEDED

REACTIONS (3)
  - DEPENDENCE [None]
  - DRUG INEFFECTIVE [None]
  - SMOKER [None]
